FAERS Safety Report 24815805 (Version 4)
Quarter: 2025Q2

REPORT INFORMATION
  Report Type: Report from Study
  Country: US (occurrence: US)
  Receive Date: 20250107
  Receipt Date: 20250409
  Transmission Date: 20250717
  Serious: Yes (Hospitalization, Other)
  Sender: BOEHRINGER INGELHEIM
  Company Number: US-BoehringerIngelheim-2024-BI-058425

PATIENT
  Age: 88 Year
  Sex: Male

DRUGS (2)
  1. OFEV [Suspect]
     Active Substance: NINTEDANIB
     Indication: Idiopathic pulmonary fibrosis
  2. OFEV [Suspect]
     Active Substance: NINTEDANIB
     Indication: Interstitial lung disease

REACTIONS (13)
  - Polymyalgia rheumatica [Unknown]
  - Rectal haemorrhage [Unknown]
  - Deep vein thrombosis [Unknown]
  - Idiopathic pulmonary fibrosis [Unknown]
  - Pulmonary embolism [Unknown]
  - Hepatic enzyme increased [Recovered/Resolved]
  - White blood cell count increased [Recovered/Resolved]
  - Hepatic enzyme increased [Unknown]
  - Oedema [Unknown]
  - Haemoglobin decreased [Unknown]
  - Giant cell arteritis [Unknown]
  - Myositis [Unknown]
  - Blood test abnormal [Unknown]

NARRATIVE: CASE EVENT DATE: 20241001
